FAERS Safety Report 9260839 (Version 1)
Quarter: 2013Q2

REPORT INFORMATION
  Report Type: Spontaneous
  Country: PE (occurrence: PE)
  Receive Date: 20130429
  Receipt Date: 20130429
  Transmission Date: 20140414
  Serious: Yes (Death)
  Sender: FDA-Public Use
  Company Number: PE-PFIZER INC-2013131445

PATIENT
  Age: 82 Year
  Sex: Female

DRUGS (1)
  1. NORVASTOR [Suspect]
     Dosage: UNK
     Route: 048

REACTIONS (1)
  - Death [Fatal]
